FAERS Safety Report 24314486 (Version 1)
Quarter: 2024Q3

REPORT INFORMATION
  Report Type: Spontaneous
  Country: FR (occurrence: FR)
  Receive Date: 20240913
  Receipt Date: 20240913
  Transmission Date: 20241016
  Serious: Yes (Hospitalization)
  Sender: ASTELLAS
  Company Number: None

PATIENT
  Age: 85 Year
  Sex: Female
  Weight: 60 kg

DRUGS (1)
  1. VESICARE [Suspect]
     Active Substance: SOLIFENACIN SUCCINATE
     Indication: Urinary tract disorder
     Route: 048
     Dates: start: 20231115

REACTIONS (2)
  - Confusional state [Recovered/Resolved]
  - Agitation [Recovered/Resolved]

NARRATIVE: CASE EVENT DATE: 20231118
